FAERS Safety Report 6449542-8 (Version None)
Quarter: 2009Q4

REPORT INFORMATION
  Report Type: 
  Country: None (occurrence: None)
  Receive Date: 20091120
  Receipt Date: 20081223
  Transmission Date: 20100525
  Serious: Yes (Other)
  Sender: FDA-Public Use
  Company Number: US-AMGEN-QUU324077

PATIENT
  Sex: Female

DRUGS (3)
  1. ENBREL [Suspect]
     Indication: PSORIASIS
     Route: 030
     Dates: start: 20081020
  2. MINOCYCLINE HYDROCHLORIDE [Concomitant]
     Dates: start: 20081020
  3. AZELAIC ACID [Concomitant]
     Dates: start: 20080821

REACTIONS (4)
  - CONVULSION [None]
  - INFLUENZA LIKE ILLNESS [None]
  - MALAISE [None]
  - PARAESTHESIA [None]
